FAERS Safety Report 22026060 (Version 1)
Quarter: 2023Q1

REPORT INFORMATION
  Report Type: Spontaneous
  Country: US (occurrence: None)
  Receive Date: 20230223
  Receipt Date: 20230223
  Transmission Date: 20230418
  Serious: No
  Sender: FDA-Public Use
  Company Number: US-ROCHE-3164084

PATIENT
  Sex: Male
  Weight: 90.800 kg

DRUGS (2)
  1. XOLAIR [Suspect]
     Active Substance: OMALIZUMAB
     Indication: Venous thrombosis
     Dosage: ONGOING
     Route: 058
     Dates: start: 20200409
  2. XOLAIR [Concomitant]
     Active Substance: OMALIZUMAB
     Route: 058
     Dates: start: 20200408

REACTIONS (2)
  - Illness [Unknown]
  - Off label use [Unknown]
